FAERS Safety Report 22063927 (Version 2)
Quarter: 2023Q2

REPORT INFORMATION
  Report Type: Spontaneous
  Country: PL (occurrence: PL)
  Receive Date: 20230306
  Receipt Date: 20230628
  Transmission Date: 20230722
  Serious: Yes (Life-Threatening, Hospitalization, Other)
  Sender: FDA-Public Use
  Company Number: PL-LESVI-2023000796

PATIENT
  Age: 64 Year
  Sex: Female

DRUGS (9)
  1. PAROXETINE [Interacting]
     Active Substance: PAROXETINE
     Indication: Depression
     Dosage: 20 MILLIGRAM, ONCE A DAY
     Route: 048
  2. ZOLPIDEM [Suspect]
     Active Substance: ZOLPIDEM TARTRATE
     Indication: Abnormal dreams
     Dosage: 10 MILLIGRAM, ONCE A DAY (30 MINUTES BEFORE BEDTIME)
     Route: 048
  3. ZOLPIDEM [Suspect]
     Active Substance: ZOLPIDEM TARTRATE
     Indication: Sleep disorder
  4. METOPROLOL [Suspect]
     Active Substance: METOPROLOL
     Indication: Atrial fibrillation
     Dosage: 100 MILLIGRAM, ONCE A DAY
     Route: 048
  5. RIVAROXABAN [Suspect]
     Active Substance: RIVAROXABAN
     Indication: Atrial fibrillation
     Dosage: 20 MILLIGRAM, ONCE A DAY
     Route: 048
  6. DOXYLAMINE [Interacting]
     Active Substance: DOXYLAMINE
     Indication: Depression
     Dosage: 25 MILLIGRAM, ONCE A DAY (30 MINUTES BEFORE SCHEDULED BEDTIME)
     Route: 048
  7. PROPAFENONE [Suspect]
     Active Substance: PROPAFENONE
     Indication: Atrial fibrillation
     Dosage: 450 MILLIGRAM, ONCE A DAY
     Route: 048
  8. LOSEC [Suspect]
     Active Substance: OMEPRAZOLE
     Indication: Atrial fibrillation
     Dosage: 40 MILLIGRAM, ONCE A DAY
     Route: 048
  9. OMEPRAZOLE [Concomitant]
     Active Substance: OMEPRAZOLE
     Indication: Atrial fibrillation
     Dosage: 40 MILLIGRAM, ONCE A DAY
     Route: 065

REACTIONS (10)
  - Acute kidney injury [Unknown]
  - Rhabdomyolysis [Unknown]
  - Chromaturia [Unknown]
  - Myalgia [Unknown]
  - Abnormal dreams [Unknown]
  - Blood creatine phosphokinase increased [Unknown]
  - Drug interaction [Unknown]
  - Product administration error [Unknown]
  - Sleep disorder [Unknown]
  - Somnolence [Unknown]
